FAERS Safety Report 5740649-7 (Version None)
Quarter: 2008Q2

REPORT INFORMATION
  Report Type: 
  Country: None (occurrence: None)
  Receive Date: 20080516
  Receipt Date: 20080514
  Transmission Date: 20081010
  Serious: Yes (Life-Threatening, Hospitalization)
  Sender: FDA-Public Use
  Company Number: B0520382B

PATIENT
  Sex: Female

DRUGS (6)
  1. TOPOTECAN [Suspect]
     Indication: NEOPLASM MALIGNANT
     Dosage: 4MG WEEKLY
     Route: 042
     Dates: start: 20070605, end: 20070619
  2. TRAMAL LONG [Concomitant]
     Indication: PAIN
     Dosage: 200MG PER DAY
     Dates: start: 20070725
  3. HALOPERIDOL [Concomitant]
     Indication: PAIN
     Dosage: 1.5MG PER DAY
     Dates: start: 20070725
  4. NOVALDIN INJ [Concomitant]
     Indication: PAIN
     Dosage: 4G PER DAY
     Route: 042
     Dates: start: 20070725, end: 20070727
  5. KEVATRIL [Concomitant]
     Indication: NAUSEA
     Dosage: 3MG PER DAY
     Route: 042
     Dates: start: 20070725, end: 20070725
  6. MCP [Concomitant]
     Indication: NAUSEA
     Dosage: 30MG PER DAY
     Route: 042
     Dates: start: 20070725

REACTIONS (5)
  - ANAEMIA [None]
  - ASCITES [None]
  - ILEUS [None]
  - NAUSEA [None]
  - PAIN [None]
